FAERS Safety Report 11213411 (Version 2)
Quarter: 2015Q3

REPORT INFORMATION
  Report Type: Spontaneous
  Country: ES (occurrence: ES)
  Receive Date: 20150623
  Receipt Date: 20150806
  Transmission Date: 20151125
  Serious: Yes (Hospitalization)
  Sender: FDA-Public Use
  Company Number: ES-BRISTOL-MYERS SQUIBB COMPANY-BMS-2015-040258

PATIENT
  Age: 12 Year
  Sex: Male

DRUGS (7)
  1. LISDEXANFETAMINA [Concomitant]
     Indication: HYPERPHAGIA
  2. TOPIRAMATE. [Concomitant]
     Active Substance: TOPIRAMATE
     Indication: BIPOLAR DISORDER
     Dosage: 100 MG, BID
     Route: 065
  3. TOPIRAMATE. [Concomitant]
     Active Substance: TOPIRAMATE
     Indication: HYPERPHAGIA
     Dosage: 50 MG, BID
     Route: 048
  4. ABILIFY [Suspect]
     Active Substance: ARIPIPRAZOLE
     Indication: ABNORMAL BEHAVIOUR
     Dosage: 15 MG, BID
     Route: 048
  5. LISDEXANFETAMINA [Concomitant]
     Indication: ATTENTION DEFICIT/HYPERACTIVITY DISORDER
     Dosage: 70 MG, UNK
     Route: 065
  6. OLANZAPINE. [Concomitant]
     Active Substance: OLANZAPINE
     Indication: BIPOLAR DISORDER
     Dosage: 10 MG, QD
     Route: 065
  7. ABILIFY [Suspect]
     Active Substance: ARIPIPRAZOLE
     Indication: BIPOLAR DISORDER
     Dosage: 10 MG, BID
     Route: 048

REACTIONS (5)
  - Confusional state [Recovered/Resolved]
  - Disorientation [Recovered/Resolved]
  - Pyrexia [Recovered/Resolved]
  - Abnormal behaviour [Recovered/Resolved]
  - Off label use [Unknown]
